FAERS Safety Report 20151810 (Version 2)
Quarter: 2022Q1

REPORT INFORMATION
  Report Type: Spontaneous
  Country: AT (occurrence: AT)
  Receive Date: 20211206
  Receipt Date: 20220206
  Transmission Date: 20220423
  Serious: Yes (Death, Hospitalization, Other)
  Sender: FDA-Public Use
  Company Number: AT-NOVARTISPH-NVSC2021AT272452

PATIENT
  Sex: Male
  Weight: .8 kg

DRUGS (6)
  1. GABAPENTIN [Suspect]
     Active Substance: GABAPENTIN
     Indication: Foetal exposure during pregnancy
     Dosage: MOTHER DOSE AT EXPOSURE: UNK
     Route: 064
  2. TACROLIMUS [Suspect]
     Active Substance: TACROLIMUS
     Indication: Foetal exposure during pregnancy
     Dosage: MOTHER DOSE AT EXPOSURE: UNK
     Route: 064
  3. QUETIAPINE [Suspect]
     Active Substance: QUETIAPINE
     Indication: Foetal exposure during pregnancy
     Dosage: MOTHER DOSE AT EXPOSURE: UNK
     Route: 064
  4. LORAZEPAM [Suspect]
     Active Substance: LORAZEPAM
     Indication: Foetal exposure during pregnancy
     Dosage: MATERNAL DOSE AT EXPOSURE: UNK
     Route: 064
  5. MAGNESIUM SULFATE [Suspect]
     Active Substance: MAGNESIUM SULFATE
     Indication: Foetal exposure during pregnancy
     Dosage: MATERNAL DOSE AT EXPOSURE: UNK
     Route: 064
  6. ALEMTUZUMAB [Suspect]
     Active Substance: ALEMTUZUMAB
     Indication: Foetal exposure during pregnancy
     Dosage: MOTHER DOSE AT EXPOSURE: UNK
     Route: 064

REACTIONS (10)
  - Pulmonary hypertension [Fatal]
  - Neonatal respiratory distress syndrome [Fatal]
  - Death neonatal [Fatal]
  - Hypertension [Unknown]
  - Premature baby [Unknown]
  - Thrombocytopenia neonatal [Unknown]
  - Foetal growth restriction [Unknown]
  - Drug withdrawal syndrome neonatal [Unknown]
  - Low birth weight baby [Unknown]
  - Foetal exposure during pregnancy [Unknown]
